FAERS Safety Report 9938928 (Version 1)
Quarter: 2014Q1

REPORT INFORMATION
  Report Type: Report from Study
  Country: US (occurrence: US)
  Receive Date: 20140303
  Receipt Date: 20140303
  Transmission Date: 20141002
  Serious: No
  Sender: FDA-Public Use
  Company Number: US-ABBVIE-13P-163-1038275-00

PATIENT
  Age: 53 Year
  Sex: Female

DRUGS (27)
  1. OMEPRAZOLE [Concomitant]
     Indication: GASTROOESOPHAGEAL REFLUX DISEASE
     Dosage: DAILY
  2. OVER THE COUNTER PROBIOTIC [Concomitant]
     Indication: GASTROOESOPHAGEAL REFLUX DISEASE
  3. TRIAM HCTZ [Concomitant]
     Indication: HYPERTENSION
     Dosage: 37.5/25MG DAILY
  4. TORSEMIDE [Concomitant]
     Indication: JOINT SWELLING
  5. MUCINEX [Concomitant]
     Indication: NASAL CONGESTION
  6. ASPIRIN [Concomitant]
     Indication: PROPHYLAXIS
     Dosage: DAILY
  7. METHOTREXATE [Concomitant]
     Indication: RHEUMATOID ARTHRITIS
     Dosage: 8 PILLS EVERY WED
  8. MOVE FREE OVER THE COUNTER [Concomitant]
     Indication: VITAMIN SUPPLEMENTATION
     Dosage: DAILY
  9. PROAIR HFA [Concomitant]
     Indication: ASTHMA
  10. TYLENOL [Concomitant]
     Indication: PAIN
  11. LYRICA [Concomitant]
     Indication: FIBROMYALGIA
     Dosage: AT NIGHT
  12. SINGULAIR [Concomitant]
     Indication: ASTHMA
     Dosage: AT NIGHT
  13. SINGULAIR [Concomitant]
     Indication: HYPERSENSITIVITY
  14. CRESTOR [Concomitant]
     Indication: BLOOD CHOLESTEROL INCREASED
     Dosage: AT NIGHT
  15. PHENTERMINE [Concomitant]
     Indication: WEIGHT DECREASED
     Dosage: DAILY
  16. FISH OIL [Concomitant]
     Indication: PRODUCT USED FOR UNKNOWN INDICATION
  17. CENTRUM 50 + WOMEN DAILY VITAMIN [Concomitant]
     Indication: PRODUCT USED FOR UNKNOWN INDICATION
  18. CALCIUM [Concomitant]
     Indication: PRODUCT USED FOR UNKNOWN INDICATION
  19. D3 [Concomitant]
     Indication: PRODUCT USED FOR UNKNOWN INDICATION
  20. IRON [Concomitant]
     Indication: MINERAL SUPPLEMENTATION
     Dosage: 1-2 PER DAY
  21. SULFASALAZINE [Concomitant]
     Indication: PRODUCT USED FOR UNKNOWN INDICATION
  22. HUMIRA [Suspect]
     Indication: RHEUMATOID ARTHRITIS
     Dates: start: 20121205
  23. SYNTHROID [Concomitant]
     Indication: HYPOTHYROIDISM
     Dosage: DAILY
  24. RESTASIS [Concomitant]
     Indication: DRY EYE
     Dosage: IN EACH EYE TWICE A DAY
  25. FLUOXETINE HCL [Concomitant]
     Indication: DEPRESSION
  26. FLUOXETINE HCL [Concomitant]
     Indication: ANXIETY
  27. FLUTICASONE PROPIONATE [Concomitant]
     Indication: HYPERSENSITIVITY
     Dosage: 1-2 SPRAYS IN EACH NOSTRIL DAILY

REACTIONS (1)
  - Pain in extremity [Recovering/Resolving]
